FAERS Safety Report 7433247-0 (Version None)
Quarter: 2011Q2

REPORT INFORMATION
  Report Type: 
  Country: None (occurrence: None)
  Receive Date: 20110422
  Receipt Date: 20110414
  Transmission Date: 20111010
  Serious: Yes (Other)
  Sender: FDA-Public Use
  Company Number: CHPA2011US05448

PATIENT
  Age: 79 Year
  Sex: Female
  Weight: 57.596 kg

DRUGS (10)
  1. NEXIUM [Concomitant]
     Indication: OESOPHAGEAL DISORDER
  2. ASPIRIN [Concomitant]
     Dosage: UNK, UNK
  3. DRUG THERAPY NOS [Concomitant]
     Indication: CATARACT
     Dosage: UNK, UNK
  4. LORAZEPAM [Concomitant]
     Indication: NERVOUSNESS
     Dosage: 1 MG, 2-3 TIMES A DAY
     Route: 048
  5. METFORMIN [Concomitant]
     Indication: HYPERGLYCAEMIA
     Dosage: 500 MG, QD
     Route: 048
  6. LISINOPRIL [Concomitant]
     Dosage: 20 MG, QD
     Route: 048
  7. ZOCOR [Concomitant]
     Indication: ABDOMINAL PAIN UPPER
     Dosage: 20 MG, QD
     Route: 048
  8. BENEFIBER W/ WHEAT DEXTRIN [Suspect]
     Indication: INFREQUENT BOWEL MOVEMENTS
     Dosage: 2 TSP, TID
     Route: 048
  9. BUPROPION [Concomitant]
     Indication: NERVOUSNESS
     Dosage: 150 MG, QD
     Route: 048
  10. NEXIUM [Concomitant]
     Indication: ABDOMINAL PAIN UPPER
     Dosage: UNK, UNK

REACTIONS (3)
  - URINARY RETENTION [None]
  - DRUG INEFFECTIVE FOR UNAPPROVED INDICATION [None]
  - DRY MOUTH [None]
